FAERS Safety Report 15254828 (Version 1)
Quarter: 2018Q3

REPORT INFORMATION
  Report Type: Spontaneous
  Country: US (occurrence: US)
  Receive Date: 20180808
  Receipt Date: 20180808
  Transmission Date: 20181010
  Serious: No
  Sender: FDA-Public Use
  Company Number: US-MYLANLABS-2018M1057730

PATIENT
  Sex: Female

DRUGS (2)
  1. BUPRENORPHINE HYDROCHLORIDE SUBLINGUAL TABLETS [Suspect]
     Active Substance: BUPRENORPHINE HYDROCHLORIDE
     Indication: COMPLEX REGIONAL PAIN SYNDROME
     Dosage: 1 DF, TID
  2. BUPRENORPHINE HYDROCHLORIDE SUBLINGUAL TABLETS [Suspect]
     Active Substance: BUPRENORPHINE HYDROCHLORIDE
     Indication: PAIN
     Dosage: 1 DF, BID (AS NEEDED)
     Route: 060

REACTIONS (9)
  - Drug ineffective [Unknown]
  - Product physical issue [Unknown]
  - Somnolence [Unknown]
  - Allodynia [Unknown]
  - Abdominal pain upper [Unknown]
  - Product solubility abnormal [Unknown]
  - Dysgeusia [Unknown]
  - Headache [Unknown]
  - Nausea [Unknown]

NARRATIVE: CASE EVENT DATE: 20180721
